FAERS Safety Report 18809601 (Version 1)
Quarter: 2021Q1

REPORT INFORMATION
  Report Type: Spontaneous
  Country: US (occurrence: US)
  Receive Date: 20210129
  Receipt Date: 20210129
  Transmission Date: 20210419
  Serious: Yes (Other)
  Sender: FDA-Public Use
  Company Number: US-GW PHARMA-202101USGW00270

PATIENT

DRUGS (4)
  1. EPIDIOLEX [Suspect]
     Active Substance: CANNABIDIOL
     Dosage: 31.26 MG/KG/QD, 730 MILLIGRAM, BID
     Route: 048
     Dates: start: 20210115
  2. EPIDIOLEX [Suspect]
     Active Substance: CANNABIDIOL
     Indication: EPILEPSY
     Dosage: 20.12 MG/KG, 470 MILLIGRAM, BID (FIRST SHIPPED ON 13 AUG 2019)
     Route: 048
     Dates: start: 201908
  3. SABRIL [Concomitant]
     Active Substance: VIGABATRIN
     Indication: PRODUCT USED FOR UNKNOWN INDICATION
     Dosage: UNK
     Route: 065
  4. EPIDIOLEX [Suspect]
     Active Substance: CANNABIDIOL
     Indication: EPILEPSY
     Dosage: 28.69 MG/KG/DAY, 670 MILLIGRAM, BID
     Route: 048
     Dates: start: 202101, end: 202101

REACTIONS (2)
  - Prescribed overdose [Unknown]
  - Seizure [Unknown]
